FAERS Safety Report 5055367-0 (Version None)
Quarter: 2006Q3

REPORT INFORMATION
  Report Type: 
  Country: None (occurrence: None)
  Receive Date: 20060719
  Receipt Date: 20010524
  Transmission Date: 20061208
  Serious: Yes (Hospitalization, Other)
  Sender: FDA-Public Use
  Company Number: JP-ABBOTT-01P-087-0107353-00

PATIENT
  Sex: Male

DRUGS (34)
  1. NORVIR [Suspect]
     Indication: HIV INFECTION
     Route: 048
     Dates: start: 20000113, end: 20000118
  2. NORVIR [Suspect]
     Route: 048
     Dates: start: 20000119, end: 20010805
  3. NORVIR [Suspect]
     Route: 048
     Dates: start: 20011023, end: 20041111
  4. NORVIR [Suspect]
     Route: 048
     Dates: start: 20050315
  5. KALETRA [Suspect]
     Indication: HIV INFECTION
     Route: 048
     Dates: start: 20010806, end: 20011014
  6. DIDANOSINE [Suspect]
     Indication: HIV INFECTION
     Route: 048
     Dates: end: 19991230
  7. DIDANOSINE [Suspect]
     Route: 048
     Dates: start: 20000113, end: 20000805
  8. DIDANOSINE [Suspect]
     Route: 048
     Dates: start: 20011023
  9. DIDANOSINE [Suspect]
  10. STAVUDINE [Suspect]
     Indication: HIV INFECTION
     Route: 048
     Dates: end: 19991230
  11. STAVUDINE [Suspect]
     Route: 048
     Dates: start: 20000113, end: 20010805
  12. STAVUDINE [Suspect]
     Route: 048
     Dates: start: 20011015, end: 20011016
  13. INDINIVIR SULFATE [Suspect]
     Indication: HIV INFECTION
     Route: 048
     Dates: end: 19991230
  14. INDINIVIR SULFATE [Suspect]
     Route: 048
     Dates: start: 20000119, end: 20010805
  15. SAQUINAVIR [Suspect]
     Indication: HIV INFECTION
     Route: 048
     Dates: start: 20000113, end: 20000118
  16. SAQUINAVIR [Suspect]
     Route: 048
     Dates: start: 20011023, end: 20041111
  17. LAMIVUDINE [Suspect]
     Indication: HIV INFECTION
     Route: 048
     Dates: start: 20011023
  18. ABACAVIR [Suspect]
     Indication: HIV INFECTION
     Route: 048
     Dates: start: 20010806, end: 20011016
  19. ATAZANAVIR [Suspect]
     Indication: HIV INFECTION
     Route: 048
     Dates: start: 20041112, end: 20050314
  20. ATAZANAVIR [Suspect]
     Route: 048
     Dates: start: 20050315
  21. AMPRENAVIR [Suspect]
     Indication: HIV INFECTION
     Route: 048
     Dates: start: 20011015, end: 20011016
  22. EFAVIRENZ [Suspect]
     Indication: HIV INFECTION
     Route: 048
     Dates: start: 20010806, end: 20010930
  23. EFAVIRENZ [Suspect]
     Route: 048
     Dates: start: 20011001, end: 20011014
  24. OCTOCOG ALFA [Concomitant]
     Indication: FACTOR VIII DEFICIENCY
     Dates: start: 19991101, end: 19991206
  25. RURIOCTOCOG ALFA [Concomitant]
     Indication: FACTOR VIII DEFICIENCY
     Dates: start: 19991207, end: 20000926
  26. ANTIHEMOPHILIC FACTOR (HUMAN) [Concomitant]
     Indication: FACTOR VIII DEFICIENCY
     Dates: start: 20000927
  27. MULTIVITAMIN [Concomitant]
     Indication: DRUG USE FOR UNKNOWN INDICATION
     Route: 048
     Dates: start: 20000608
  28. ALLOPURINOL [Concomitant]
     Indication: HYPERURICAEMIA
     Route: 048
     Dates: start: 20000829, end: 20041104
  29. FAMOTIDINE [Concomitant]
     Indication: GASTRIC ULCER
     Route: 048
     Dates: start: 20040223, end: 20041111
  30. FAMOTIDINE [Concomitant]
     Route: 048
     Dates: start: 20050118
  31. LANSOPRAZOLE [Concomitant]
     Indication: GASTRIC ULCER
     Route: 048
     Dates: start: 20041019, end: 20041111
  32. TEPRENONE [Concomitant]
     Indication: GASTRIC ULCER
     Route: 048
     Dates: start: 20041019
  33. SPIRONOLACTONE [Concomitant]
     Indication: DEHYDRATION
     Route: 048
     Dates: start: 20041109
  34. ZOPICLONE [Concomitant]
     Indication: INSOMNIA
     Route: 048
     Dates: start: 20050322

REACTIONS (13)
  - ACUTE ABDOMEN [None]
  - AFFECT LABILITY [None]
  - ANAEMIA [None]
  - BLOOD CREATINE PHOSPHOKINASE INCREASED [None]
  - DEPRESSION [None]
  - DIARRHOEA [None]
  - DRY SKIN [None]
  - GASTROINTESTINAL HAEMORRHAGE [None]
  - INSOMNIA [None]
  - LIVER DISORDER [None]
  - NAUSEA [None]
  - PYREXIA [None]
  - WHITE BLOOD CELL COUNT DECREASED [None]
